FAERS Safety Report 23127355 (Version 1)
Quarter: 2023Q4

REPORT INFORMATION
  Report Type: Spontaneous
  Country: TR (occurrence: TR)
  Receive Date: 20231031
  Receipt Date: 20231031
  Transmission Date: 20240110
  Serious: Yes (Other)
  Sender: FDA-Public Use
  Company Number: TR-STRIDES ARCOLAB LIMITED-2023SP016150

PATIENT
  Age: 41 Year
  Sex: Female

DRUGS (4)
  1. METHOTREXATE [Suspect]
     Active Substance: METHOTREXATE
     Indication: Morphoea
     Dosage: 15 MG/ML PER WEEK
     Route: 058
  2. METHOTREXATE [Suspect]
     Active Substance: METHOTREXATE
     Indication: Morphoea
  3. TACROLIMUS [Concomitant]
     Active Substance: TACROLIMUS
     Indication: Morphoea
     Dosage: 0.1 PERCENT
     Route: 061
  4. TACROLIMUS [Concomitant]
     Active Substance: TACROLIMUS
     Indication: Morphoea

REACTIONS (2)
  - Idiopathic intracranial hypertension [Recovered/Resolved]
  - Off label use [Unknown]
